FAERS Safety Report 6030264-2 (Version None)
Quarter: 2009Q1

REPORT INFORMATION
  Report Type: 
  Country: None (occurrence: None)
  Receive Date: 20090107
  Receipt Date: 20081226
  Transmission Date: 20090719
  Serious: Yes (Life-Threatening, Hospitalization)
  Sender: FDA-Public Use
  Company Number: JP-SANOFI-SYNTHELABO-A01200814457

PATIENT
  Sex: Female
  Weight: 85 kg

DRUGS (12)
  1. SOLANAX [Suspect]
     Indication: DEPRESSION
     Route: 048
     Dates: end: 20080910
  2. ROHYPNOL [Suspect]
     Indication: DEPRESSION
     Route: 048
     Dates: end: 20080910
  3. EVAMYL [Suspect]
     Indication: DEPRESSION
     Route: 048
     Dates: end: 20080910
  4. LEVOTOMIN [Suspect]
     Indication: DEPRESSION
     Route: 048
     Dates: end: 20080910
  5. LUDIOMIL [Suspect]
     Indication: DEPRESSION
     Route: 048
     Dates: end: 20080910
  6. AMOXAN [Suspect]
     Indication: DEPRESSION
     Route: 048
     Dates: end: 20080910
  7. ANAFRANIL [Suspect]
     Indication: DEPRESSION
     Route: 048
     Dates: end: 20080910
  8. ZOLOFT [Suspect]
     Indication: DEPRESSION
     Route: 048
     Dates: end: 20080910
  9. LEXOTAN [Suspect]
     Indication: DEPRESSION
     Route: 048
     Dates: end: 20080910
  10. SEROQUEL [Suspect]
     Indication: DEPRESSION
     Route: 048
     Dates: end: 20080401
  11. SEROQUEL [Suspect]
     Route: 048
     Dates: start: 20080401, end: 20080910
  12. MYSLEE [Suspect]
     Indication: DEPRESSION
     Route: 048
     Dates: end: 20080910

REACTIONS (5)
  - CONSTIPATION [None]
  - DIABETIC KETOACIDOSIS [None]
  - NEUROLEPTIC MALIGNANT SYNDROME [None]
  - PANCREATITIS ACUTE [None]
  - RENAL FAILURE ACUTE [None]
